FAERS Safety Report 19831073 (Version 1)
Quarter: 2021Q3

REPORT INFORMATION
  Report Type: Spontaneous
  Country: US (occurrence: US)
  Receive Date: 20210915
  Receipt Date: 20210915
  Transmission Date: 20211014
  Serious: Yes (Hospitalization)
  Sender: FDA-Public Use
  Company Number: US-AMGEN-USASP2021139956

PATIENT
  Sex: Female

DRUGS (17)
  1. OTEZLA [Suspect]
     Active Substance: APREMILAST
     Indication: PSORIASIS
     Dosage: 30 MILLIGRAM
     Route: 048
  2. EFFEXOR [Concomitant]
     Active Substance: VENLAFAXINE HYDROCHLORIDE
  3. MESALAMINE DELAYED RELEASE [Concomitant]
     Active Substance: MESALAMINE
  4. VITAMIN C [Concomitant]
     Active Substance: ASCORBIC ACID
  5. ATENOLOL. [Concomitant]
     Active Substance: ATENOLOL
  6. COLCRYS [Concomitant]
     Active Substance: COLCHICINE
  7. LOSARTAN POTASSIUM. [Concomitant]
     Active Substance: LOSARTAN POTASSIUM
  8. LIOTHYRONINE SODIUM. [Concomitant]
     Active Substance: LIOTHYRONINE SODIUM
  9. FUROSEMIDE. [Concomitant]
     Active Substance: FUROSEMIDE
  10. TRAMADOL HCL [Concomitant]
     Active Substance: TRAMADOL HYDROCHLORIDE
  11. METHOCARBAMOL. [Concomitant]
     Active Substance: METHOCARBAMOL
  12. CYMBALTA [Concomitant]
     Active Substance: DULOXETINE HYDROCHLORIDE
  13. ALLOPURINOL. [Concomitant]
     Active Substance: ALLOPURINOL
  14. MAGNESIUM [Concomitant]
     Active Substance: MAGNESIUM
  15. OMEPRAZOLE. [Concomitant]
     Active Substance: OMEPRAZOLE
  16. EZETIMIBE. [Concomitant]
     Active Substance: EZETIMIBE
  17. LYRICA [Concomitant]
     Active Substance: PREGABALIN

REACTIONS (2)
  - Unevaluable event [Unknown]
  - Rehabilitation therapy [Unknown]
